FAERS Safety Report 22344298 (Version 2)
Quarter: 2023Q2

REPORT INFORMATION
  Report Type: Report from Study
  Country: US (occurrence: US)
  Receive Date: 20230519
  Receipt Date: 20230620
  Transmission Date: 20230721
  Serious: Yes (Other)
  Sender: FDA-Public Use
  Company Number: US-JNJFOC-20230523677

PATIENT
  Age: 64 Year
  Sex: Female

DRUGS (3)
  1. ESKETAMINE [Suspect]
     Active Substance: ESKETAMINE
     Indication: Product used for unknown indication
     Dosage: TOTAL 1 DOSE
     Dates: start: 20220822, end: 20220822
  2. ESKETAMINE [Suspect]
     Active Substance: ESKETAMINE
     Dosage: TOTAL 13 DOSE
     Dates: start: 20220825, end: 20221130
  3. ESKETAMINE [Suspect]
     Active Substance: ESKETAMINE
     Dosage: MOST RECENT DOSE ON 11-MAY-2023 AND 15-MAY-2023, TOTAL 21 DOSES
     Dates: start: 20230118, end: 20230508

REACTIONS (6)
  - Facial bones fracture [Unknown]
  - Fall [Unknown]
  - Herpes zoster [Unknown]
  - Frustration tolerance decreased [Unknown]
  - Drug ineffective [Unknown]
  - Dissociation [Unknown]

NARRATIVE: CASE EVENT DATE: 20220101
